FAERS Safety Report 23304494 (Version 3)
Quarter: 2024Q1

REPORT INFORMATION
  Report Type: Spontaneous
  Country: US (occurrence: US)
  Receive Date: 20231218
  Receipt Date: 20240209
  Transmission Date: 20240410
  Serious: Yes (Other)
  Sender: FDA-Public Use
  Company Number: US-ABBVIE-5542038

PATIENT
  Sex: Male
  Weight: 99 kg

DRUGS (4)
  1. ALPHAGAN P [Suspect]
     Active Substance: BRIMONIDINE TARTRATE
     Indication: Glaucoma
     Dosage: FORM STRENGTH: BRIMONIDINE 1.5MG/ML SOL
     Route: 047
     Dates: start: 2004
  2. ALPHAGAN P [Suspect]
     Active Substance: BRIMONIDINE TARTRATE
     Dosage: FORM STRENGTH: BRIMONIDINE 1.5MG/ML SOL
     Route: 047
  3. COSOPT [Concomitant]
     Active Substance: DORZOLAMIDE HYDROCHLORIDE\TIMOLOL MALEATE
     Indication: Glaucoma
     Dates: start: 2004
  4. DORZOLAMIDE [Concomitant]
     Active Substance: DORZOLAMIDE
     Indication: Product used for unknown indication
     Dosage: DURATION TEXT: OU, SOLN

REACTIONS (3)
  - Vision blurred [Recovered/Resolved]
  - Drug hypersensitivity [Recovered/Resolved]
  - Reaction to preservatives [Unknown]

NARRATIVE: CASE EVENT DATE: 20090101
